FAERS Safety Report 12734492 (Version 1)
Quarter: 2016Q3

REPORT INFORMATION
  Report Type: Spontaneous
  Country: US (occurrence: US)
  Receive Date: 20160912
  Receipt Date: 20160912
  Transmission Date: 20161109
  Serious: No
  Sender: FDA-Public Use
  Company Number: US-ASTRAZENECA-2016SE93788

PATIENT
  Age: 27095 Day
  Sex: Female
  Weight: 59.9 kg

DRUGS (10)
  1. QUINAPRIL. [Concomitant]
     Active Substance: QUINAPRIL
     Indication: DIABETES MELLITUS
     Dosage: 1 AND A HALF OF A 40 MG OF QUINAPRIL, UNKNOWN
  2. ATORVASTATIN [Concomitant]
     Active Substance: ATORVASTATIN
     Indication: BLOOD CHOLESTEROL ABNORMAL
  3. FARGON [Concomitant]
     Indication: BLOOD IRON ABNORMAL
     Dosage: UNKNOWN,DAILY
  4. LEVAMIR [Concomitant]
     Indication: BLOOD GLUCOSE ABNORMAL
     Dosage: 25 IU
     Route: 058
  5. BYETTA [Suspect]
     Active Substance: EXENATIDE
     Indication: TYPE 2 DIABETES MELLITUS
     Dosage: 250 MCG / 2.4 ML PEN,UNKNOWN
     Route: 065
     Dates: start: 201508
  6. FENOFIBRATE. [Concomitant]
     Active Substance: FENOFIBRATE
     Indication: BLOOD PRESSURE ABNORMAL
  7. QUINAPRIL. [Concomitant]
     Active Substance: QUINAPRIL
     Indication: DIABETES MELLITUS
     Dosage: 40.0MG UNKNOWN
  8. ASPRIN [Concomitant]
     Active Substance: ASPIRIN
     Indication: MYOCARDIAL INFARCTION
  9. FOLIC ACID. [Concomitant]
     Active Substance: FOLIC ACID
     Indication: BLOOD IRON ABNORMAL
  10. HYDROCHLOROTHIAZIIDE [Concomitant]

REACTIONS (2)
  - Blood glucose increased [Unknown]
  - Product quality issue [Unknown]

NARRATIVE: CASE EVENT DATE: 20160829
